FAERS Safety Report 9706746 (Version 2)
Quarter: 2013Q4

REPORT INFORMATION
  Report Type: Spontaneous
  Country: US (occurrence: US)
  Receive Date: 20131125
  Receipt Date: 20131125
  Transmission Date: 20140711
  Serious: Yes (Other)
  Sender: FDA-Public Use
  Company Number: US-INCYTE CORPORATION-2013IN001478

PATIENT
  Age: 52 Year
  Sex: Female
  Weight: 72.47 kg

DRUGS (8)
  1. JAKAFI [Suspect]
     Indication: MYELOPROLIFERATIVE DISORDER
     Dosage: 10 MG, BID
     Route: 048
     Dates: start: 20120927, end: 20131003
  2. JAKAFI [Suspect]
     Indication: MYELOFIBROSIS
  3. SYNTHROID [Concomitant]
     Dosage: UNK
  4. PREVACID [Concomitant]
  5. PEGYLATED INTERFERON [Concomitant]
     Dosage: 45 MCG, UNK
     Dates: start: 20110401
  6. GLEEVEC [Concomitant]
     Dosage: 400 MG, QD
     Dates: start: 20130821
  7. ARIXTRA [Concomitant]
     Dosage: 7.5 MG, QD
     Route: 058
     Dates: start: 201306
  8. ASPIRIN [Concomitant]
     Dosage: 81 MG, QD
     Route: 048

REACTIONS (4)
  - Chronic myeloid leukaemia [Unknown]
  - Leukocytosis [Unknown]
  - Adverse drug reaction [Unknown]
  - Thrombocytopenia [Unknown]
